FAERS Safety Report 7290352-X (Version None)
Quarter: 2011Q1

REPORT INFORMATION
  Report Type: 
  Country: None (occurrence: None)
  Receive Date: 20110214
  Receipt Date: 20110203
  Transmission Date: 20110831
  Serious: Yes (Life-Threatening, Hospitalization)
  Sender: FDA-Public Use
  Company Number: FR-SANOFI-AVENTIS-2011SA007337

PATIENT
  Age: 84 Year
  Sex: Female

DRUGS (5)
  1. STRONTIUM RANELATE [Concomitant]
     Route: 048
  2. INDAPAMIDE [Suspect]
     Indication: HYPERTENSION
     Route: 048
     Dates: end: 20110113
  3. URBANYL [Concomitant]
     Route: 065
  4. DILTIAZEM [Concomitant]
     Route: 065
  5. EUPRESSYL [Concomitant]
     Route: 065

REACTIONS (5)
  - SOMNOLENCE [None]
  - DECREASED APPETITE [None]
  - HYPOKALAEMIA [None]
  - ASTHENIA [None]
  - HYPONATRAEMIA [None]
